FAERS Safety Report 8109401-1 (Version None)
Quarter: 2012Q1

REPORT INFORMATION
  Report Type: 
  Country: None (occurrence: None)
  Receive Date: 20120202
  Receipt Date: 20120120
  Transmission Date: 20120608
  Serious: Yes (Other)
  Sender: FDA-Public Use
  Company Number: IE-MYLANLABS-2012S1001637

PATIENT
  Age: 32 Year
  Sex: Female

DRUGS (2)
  1. CLOZAPINE [Suspect]
     Indication: SCHIZOPHRENIA, PARANOID TYPE
     Dosage: GRADUALLY TITRATED UP TO 150 MG/DAY; THEN TITRATED TO 450 MG/DAY
     Route: 065
  2. CLOZAPINE [Suspect]
     Dosage: 450 MG/DAY
     Route: 065

REACTIONS (3)
  - GRAND MAL CONVULSION [None]
  - CONFUSIONAL STATE [None]
  - ENURESIS [None]
